FAERS Safety Report 9437101 (Version 7)
Quarter: 2014Q2

REPORT INFORMATION
  Report Type: Spontaneous
  Country: US (occurrence: US)
  Receive Date: 20130802
  Receipt Date: 20140513
  Transmission Date: 20141212
  Serious: Yes (Hospitalization, Disabling, Other)
  Sender: FDA-Public Use
  Company Number: US-009507513-1307USA016409

PATIENT
  Sex: Female
  Weight: 62.13 kg

DRUGS (6)
  1. FOSAMAX [Suspect]
     Indication: OSTEOPENIA
     Dosage: 70 MG, QW
     Route: 048
     Dates: start: 20020603, end: 20120111
  2. FOSAMAX [Suspect]
     Dosage: 5 MG, QAM
     Route: 048
     Dates: start: 20000828, end: 20020307
  3. FOSAMAX PLUS D [Suspect]
     Indication: OSTEOPENIA
     Dosage: 70 MG/2800 IU, QW
     Route: 048
     Dates: start: 20080115, end: 20120111
  4. ALENDRONATE SODIUM [Suspect]
     Indication: OSTEOPENIA
     Dosage: 70 MG, QW
     Route: 048
     Dates: end: 20120111
  5. BLACK COHOSH [Concomitant]
     Indication: MENOPAUSAL SYMPTOMS
     Dosage: 1-2 Q HS
     Route: 048
  6. HORMONES (UNSPECIFIED) [Concomitant]
     Dosage: UNK
     Dates: start: 1999, end: 2012

REACTIONS (46)
  - Intramedullary rod insertion [Not Recovered/Not Resolved]
  - Intramedullary rod insertion [Not Recovered/Not Resolved]
  - Femur fracture [Recovered/Resolved]
  - Femur fracture [Recovered/Resolved]
  - Scapula fracture [Unknown]
  - Gait disturbance [Unknown]
  - Vitamin D deficiency [Unknown]
  - Asthma [Unknown]
  - Chest pain [Unknown]
  - Neuroma [Unknown]
  - Neurectomy [Unknown]
  - Osteopenia [Unknown]
  - Chronic obstructive pulmonary disease [Not Recovered/Not Resolved]
  - Urinary tract infection [Unknown]
  - Ear pain [Unknown]
  - Pain [Unknown]
  - Irritable bowel syndrome [Unknown]
  - Psoriasis [Unknown]
  - Smear cervix abnormal [Unknown]
  - Spinal osteoarthritis [Unknown]
  - Libido decreased [Unknown]
  - Fatigue [Unknown]
  - Hepatic cyst [Unknown]
  - Stress [Unknown]
  - Hot flush [Unknown]
  - Dysuria [Unknown]
  - Urine odour abnormal [Unknown]
  - Sacroiliitis [Unknown]
  - Facet joint syndrome [Unknown]
  - Sleep apnoea syndrome [Unknown]
  - Intervertebral disc degeneration [Unknown]
  - Spinal column stenosis [Unknown]
  - Intervertebral disc protrusion [Unknown]
  - Bursitis [Unknown]
  - Back pain [Unknown]
  - Neck pain [Unknown]
  - Myalgia [Unknown]
  - Duodenal ulcer [Unknown]
  - Pain in jaw [Unknown]
  - Abdominal discomfort [Unknown]
  - Pain in extremity [Unknown]
  - Abdominal pain lower [Unknown]
  - Muscle spasms [Unknown]
  - Arthralgia [Unknown]
  - Drug ineffective [Unknown]
  - Gastrooesophageal reflux disease [Unknown]
